FAERS Safety Report 5262489-8 (Version None)
Quarter: 2007Q1

REPORT INFORMATION
  Report Type: 
  Country: None (occurrence: None)
  Receive Date: 20070312
  Receipt Date: 20070227
  Transmission Date: 20070707
  Serious: Yes (Hospitalization)
  Sender: FDA-Public Use
  Company Number: PHEH2006US13684

PATIENT
  Age: 67 Year
  Sex: Male

DRUGS (6)
  1. STALEVO 100 [Suspect]
     Indication: PARKINSON'S DISEASE
     Dosage: 50 MG, TID
     Route: 048
     Dates: start: 20060901
  2. MIRAPEX [Concomitant]
     Dosage: 1 MG, TID
  3. AZILECT [Concomitant]
     Dosage: 0.5 MG, QD
  4. ANTIHYPERTENSIVE DRUGS [Concomitant]
  5. GLUCOVANCE [Concomitant]
  6. GLUCOTROL [Concomitant]

REACTIONS (2)
  - SKIN CANCER [None]
  - SKIN NEOPLASM EXCISION [None]
